FAERS Safety Report 20018723 (Version 4)
Quarter: 2021Q4

REPORT INFORMATION
  Report Type: Report from Study
  Country: FR (occurrence: FR)
  Receive Date: 20211101
  Receipt Date: 20211220
  Transmission Date: 20220303
  Serious: Yes (Other)
  Sender: FDA-Public Use
  Company Number: FR-JNJFOC-20211044256

PATIENT

DRUGS (16)
  1. SPRAVATO [Suspect]
     Active Substance: ESKETAMINE
     Indication: Depression
     Dosage: 28 MG, 1 TOTAL DOSE
     Dates: start: 20200707, end: 20200707
  2. SPRAVATO [Suspect]
     Active Substance: ESKETAMINE
     Dosage: 56 MG, 1 TOTAL DOSE
     Dates: start: 20200709, end: 20200709
  3. SPRAVATO [Suspect]
     Active Substance: ESKETAMINE
     Dosage: 84 MG, 28 TOTAL DOSES
     Dates: start: 20200713, end: 20200727
  4. SPRAVATO [Suspect]
     Active Substance: ESKETAMINE
     Dosage: 28 MG, 1 TOTAL DOSE
     Dates: start: 20210518, end: 20210518
  5. SPRAVATO [Suspect]
     Active Substance: ESKETAMINE
     Dosage: 56 MG, 1 TOTAL DOSE
     Dates: start: 20210520, end: 20210520
  6. SPRAVATO [Suspect]
     Active Substance: ESKETAMINE
     Dosage: 84 MG, 11 TOTAL DOSES
     Dates: start: 20210525, end: 20210601
  7. SPRAVATO [Suspect]
     Active Substance: ESKETAMINE
     Dates: start: 20200727, end: 20200803
  8. SPRAVATO [Suspect]
     Active Substance: ESKETAMINE
     Dates: start: 20200803, end: 20200806
  9. SPRAVATO [Suspect]
     Active Substance: ESKETAMINE
     Dates: start: 20200806, end: 20200910
  10. SPRAVATO [Suspect]
     Active Substance: ESKETAMINE
     Dates: start: 20200910, end: 20200924
  11. SPRAVATO [Suspect]
     Active Substance: ESKETAMINE
     Dates: start: 20200924, end: 20201124
  12. SPRAVATO [Suspect]
     Active Substance: ESKETAMINE
     Dates: start: 20201124, end: 20201210
  13. SPRAVATO [Suspect]
     Active Substance: ESKETAMINE
     Dates: start: 20201210, end: 20210126
  14. SPRAVATO [Suspect]
     Active Substance: ESKETAMINE
     Dates: start: 20210601, end: 20210608
  15. SPRAVATO [Suspect]
     Active Substance: ESKETAMINE
     Dates: start: 20210608, end: 20210624
  16. SPRAVATO [Suspect]
     Active Substance: ESKETAMINE
     Dates: start: 20210624, end: 20210706

REACTIONS (2)
  - Suicide attempt [Unknown]
  - Drug ineffective [Unknown]
